FAERS Safety Report 7217654-7 (Version None)
Quarter: 2010Q4

REPORT INFORMATION
  Report Type: 
  Country: None (occurrence: None)
  Receive Date: 20101230
  Receipt Date: 20101215
  Transmission Date: 20110411
  Serious: Yes (Hospitalization, Disabling, Other)
  Sender: FDA-Public Use
  Company Number: ACO_21001_2010

PATIENT
  Age: 78 Year
  Sex: Female

DRUGS (8)
  1. AMPYRA [Suspect]
     Indication: PRODUCT USED FOR UNKNOWN INDICATION
     Dosage: 10 MG, Q 12 HRS, ORAL
     Route: 048
     Dates: start: 20101201, end: 20101208
  2. POTASSIUM CHLORIDE [Concomitant]
  3. AMLODIPINE BESYLATE [Concomitant]
  4. HYDROCHLOROTHIAZIDE [Concomitant]
  5. CELEBREX [Concomitant]
  6. BONIVA [Concomitant]
  7. BACLOFEN [Concomitant]
  8. GABAPENTIN [Concomitant]

REACTIONS (2)
  - DIZZINESS [None]
  - MOBILITY DECREASED [None]
